FAERS Safety Report 18912697 (Version 4)
Quarter: 2021Q2

REPORT INFORMATION
  Report Type: Report from Study
  Country: US (occurrence: US)
  Receive Date: 20210218
  Receipt Date: 20210420
  Transmission Date: 20210717
  Serious: Yes (Hospitalization)
  Sender: FDA-Public Use
  Company Number: US-JNJFOC-20210218657

PATIENT
  Age: 38 Year
  Sex: Female
  Weight: 85.9 kg

DRUGS (4)
  1. EPOPROSTENOL SODIUM. [Suspect]
     Active Substance: EPOPROSTENOL SODIUM
     Route: 042
  2. ADEMPAS [Concomitant]
     Active Substance: RIOCIGUAT
  3. EPOPROSTENOL SODIUM. [Suspect]
     Active Substance: EPOPROSTENOL SODIUM
     Indication: PULMONARY ARTERIAL HYPERTENSION
     Route: 042
  4. OPSUMIT [Concomitant]
     Active Substance: MACITENTAN

REACTIONS (13)
  - Hypotension [Unknown]
  - Weight decreased [Unknown]
  - Device occlusion [Recovered/Resolved]
  - Infusion site rash [Unknown]
  - Device alarm issue [Unknown]
  - Diarrhoea [Unknown]
  - Nausea [Unknown]
  - Candida infection [Unknown]
  - Dizziness postural [Unknown]
  - Blood potassium decreased [Unknown]
  - Catheter management [Unknown]
  - Therapy interrupted [Unknown]
  - Palpitations [Unknown]

NARRATIVE: CASE EVENT DATE: 20210209
